FAERS Safety Report 9202325 (Version 3)
Quarter: 2013Q4

REPORT INFORMATION
  Report Type: Spontaneous
  Country: GB (occurrence: GB)
  Receive Date: 20130401
  Receipt Date: 20131025
  Transmission Date: 20140711
  Serious: Yes (Life-Threatening, Hospitalization)
  Sender: FDA-Public Use
  Company Number: PHHY2013GB030583

PATIENT
  Age: 57 Year
  Sex: Female

DRUGS (10)
  1. ITRACONAZOLE [Suspect]
     Indication: ASPERGILLUS INFECTION
     Dosage: 200 MG, BID
     Route: 048
     Dates: start: 20130125, end: 20130311
  2. FLUOXETINE [Suspect]
     Indication: DEPRESSION
     Dosage: 20 MG, BID
     Route: 048
     Dates: end: 20130314
  3. RUPAFIN [Suspect]
     Indication: ASTHMA
     Dosage: 10 MG, QD
     Route: 048
     Dates: end: 20130314
  4. AIROMIR [Concomitant]
     Indication: ASTHMA
     Dosage: 2 DF, WHEN REQUIRED
     Route: 055
  5. SYMBICORT [Concomitant]
     Indication: ASTHMA
     Dosage: 2 DF, BID
     Route: 055
  6. CARBOCISTEINE [Concomitant]
     Dosage: 750 MG, TID
     Route: 048
  7. MONTELUKAST [Concomitant]
     Indication: ASTHMA
     Dosage: 10 MG, AT NIGHT
     Route: 048
  8. SODIUM CHLORIDE SOLUTION [Concomitant]
     Indication: SPUTUM RETENTION
     Dosage: 1 DF, BID
     Route: 050
  9. UNIPHYLLIN CONTINUS [Concomitant]
     Indication: ASTHMA
     Dosage: 200 MG, BID
     Route: 048
  10. OMEPRAZOLE [Concomitant]
     Dosage: 40 MG, QD
     Route: 048

REACTIONS (8)
  - Cardiac arrest [Recovered/Resolved]
  - Ventricular fibrillation [Unknown]
  - Syncope [Recovering/Resolving]
  - Electrocardiogram QT prolonged [Not Recovered/Not Resolved]
  - Unresponsive to stimuli [Unknown]
  - Urinary tract infection [Unknown]
  - Long QT syndrome [Unknown]
  - Convulsion [Unknown]
